FAERS Safety Report 7382328-9 (Version None)
Quarter: 2011Q1

REPORT INFORMATION
  Report Type: 
  Country: None (occurrence: None)
  Receive Date: 20110329
  Receipt Date: 20110221
  Transmission Date: 20110831
  Serious: Yes (Hospitalization)
  Sender: FDA-Public Use
  Company Number: US-BAYER-201034616NA

PATIENT
  Sex: Female
  Weight: 48 kg

DRUGS (4)
  1. YAZ [Suspect]
     Indication: ACNE
     Dosage: UNK UNK, QD
     Route: 048
     Dates: start: 20090401, end: 20091123
  2. YASMIN [Suspect]
     Indication: ACNE
     Dosage: UNK UNK, QD
     Route: 048
     Dates: start: 20090401, end: 20091123
  3. OCELLA [Suspect]
     Indication: PRODUCT USED FOR UNKNOWN INDICATION
     Route: 048
  4. IRON SULFATETHIAMIN COMPOUND TAB [Concomitant]
     Dosage: 325 MG, QOD
     Route: 048

REACTIONS (3)
  - PULMONARY INFARCTION [None]
  - PLEURAL EFFUSION [None]
  - PULMONARY EMBOLISM [None]
